FAERS Safety Report 9348087 (Version 2)
Quarter: 2013Q2

REPORT INFORMATION
  Report Type: Spontaneous
  Country: KR (occurrence: KR)
  Receive Date: 20130614
  Receipt Date: 20130626
  Transmission Date: 20140414
  Serious: No
  Sender: FDA-Public Use
  Company Number: KR-009507513-1306KOR003751

PATIENT
  Age: 6 Month
  Sex: Male

DRUGS (12)
  1. CASPOFUNGIN ACETATE [Suspect]
     Indication: PNEUMOCYSTIS JIROVECII PNEUMONIA
     Dosage: 50 MG ONCE PER DAY FOR DAY 26
  2. CASPOFUNGIN ACETATE [Suspect]
     Dosage: 70 MG DAILY
  3. ATOVAQUONE [Suspect]
     Indication: PNEUMOCYSTIS JIROVECII PNEUMONIA
     Dosage: 150 MG, ONCE, FROM DAY 26
  4. CHLOROGUANIDE HYDROCHLORIDE [Suspect]
     Indication: PNEUMOCYSTIS JIROVECII PNEUMONIA
     Dosage: 60 MG 2 TIMES, FROM DAY 26
  5. CLINDAMYCIN [Suspect]
     Dosage: 60MG 4 TIMES PER DAY, FROM DAY 40
  6. PRIMAQUINE [Suspect]
     Dosage: 5 MG PER DAY, FROM DAY 40
  7. SULFAMETHOXAZOLE (+) TRIMETHOPRIM [Suspect]
     Indication: PNEUMOCYSTIS JIROVECII PNEUMONIA
     Dosage: 40 MG 4 TIMES TMP COMPONENT
  8. GANCICLOVIR [Suspect]
     Indication: CYTOMEGALOVIRUS INFECTION
     Dosage: 5 MG/KG, BID
  9. GANCICLOVIR [Suspect]
     Indication: PNEUMONIA KLEBSIELLA
  10. CEFOTAXIME SODIUM [Suspect]
     Indication: PNEUMONIA KLEBSIELLA
     Dosage: 200 MG PER DAY
  11. CEFOTAXIME SODIUM [Suspect]
     Indication: CYTOMEGALOVIRUS INFECTION
  12. FOSCARNET SODIUM [Suspect]
     Indication: CYTOMEGALOVIRUS INFECTION
     Dosage: 90 MG/KG 2 TIMES PER DAY, ON DAY 9

REACTIONS (1)
  - Drug ineffective [Unknown]
